FAERS Safety Report 10309216 (Version 2)
Quarter: 2014Q3

REPORT INFORMATION
  Report Type: Spontaneous
  Country: US (occurrence: None)
  Receive Date: 20140714
  Receipt Date: 20140725
  Transmission Date: 20150326
  Serious: Yes (Hospitalization)
  Sender: FDA-Public Use
  Company Number: 2441857

PATIENT
  Age: 7 Year
  Sex: Male

DRUGS (11)
  1. VINCRISTINE SULFATE INJECTION, USP, 1MG/ML (VINCRISTINE SULFATE) [Suspect]
     Active Substance: VINCRISTINE SULFATE
     Indication: LYMPHOCYTIC LEUKAEMIA
     Dosage: UNKNOWN
     Dates: start: 20140402
  2. (METHOTREXATE) [Concomitant]
     Active Substance: METHOTREXATE
  3. CLOFARABINE [Suspect]
     Active Substance: CLOFARABINE
     Indication: LYMPHOCYTIC LEUKAEMIA
     Dates: start: 20140402
  4. (CYCLOPHOSPHAMIDE) [Suspect]
     Active Substance: CYCLOPHOSPHAMIDE
     Indication: LYMPHOCYTIC LEUKAEMIA
     Dosage: UNKNOWN
     Dates: start: 20140402
  5. (PREDNISONE) [Concomitant]
  6. ETOPOSIDE. [Suspect]
     Active Substance: ETOPOSIDE
     Indication: LYMPHOCYTIC LEUKAEMIA
     Dosage: UNKNOWN
     Dates: start: 20140402
  7. (CYTARABINE) [Concomitant]
     Active Substance: CYTARABINE
  8. PEGASPARGASE [Suspect]
     Active Substance: PEGASPARGASE
     Indication: B PRECURSOR TYPE ACUTE LEUKAEMIA
     Dates: start: 20140402
  9. (DAUNORUBICIN) [Concomitant]
  10. MERCAPTOPURINE. [Concomitant]
     Active Substance: MERCAPTOPURINE
  11. PEGFILGRASTIM [Concomitant]
     Active Substance: PEGFILGRASTIM

REACTIONS (12)
  - Platelet count decreased [None]
  - Headache [None]
  - Febrile neutropenia [None]
  - Anaemia [None]
  - Abdominal pain [None]
  - Vomiting [None]
  - Haemoglobin decreased [None]
  - Fatigue [None]
  - Nausea [None]
  - Splenomegaly [None]
  - Kidney enlargement [None]
  - Pancreatitis acute [None]

NARRATIVE: CASE EVENT DATE: 20140618
